FAERS Safety Report 7944885-0 (Version None)
Quarter: 2011Q4

REPORT INFORMATION
  Report Type: 
  Country: None (occurrence: None)
  Receive Date: 20111129
  Receipt Date: 20111121
  Transmission Date: 20120403
  Serious: Yes (Hospitalization, Other)
  Sender: FDA-Public Use
  Company Number: IE-AMGEN-IRLSP2011061633

PATIENT
  Age: 61 Year
  Sex: Male

DRUGS (2)
  1. ARANESP [Suspect]
     Indication: RENAL FAILURE CHRONIC
     Dosage: 50 MUG, QMO
     Route: 058
     Dates: start: 20110406
  2. ANALGESICS [Concomitant]

REACTIONS (2)
  - SYNCOPE [None]
  - MYOCARDIAL INFARCTION [None]
